FAERS Safety Report 6009491-6 (Version None)
Quarter: 2008Q4

REPORT INFORMATION
  Report Type: 
  Country: None (occurrence: None)
  Receive Date: 20081217
  Receipt Date: 20081008
  Transmission Date: 20090506
  Serious: No
  Sender: FDA-Public Use
  Company Number: US-BAYER-200835639NA

PATIENT
  Age: 39 Year
  Sex: Female

DRUGS (5)
  1. YAZ [Suspect]
     Indication: CONTRACEPTION
     Route: 048
     Dates: start: 20080201
  2. PENICILLIN [Suspect]
     Indication: PHARYNGITIS STREPTOCOCCAL
     Dates: start: 20080601
  3. AUGMENTIN '125' [Suspect]
     Indication: PHARYNGITIS STREPTOCOCCAL
     Dates: start: 20080601
  4. ZITHROMAX [Suspect]
     Indication: PHARYNGITIS STREPTOCOCCAL
     Dates: start: 20080601
  5. ZITHROMAX [Concomitant]
     Dates: start: 20080601

REACTIONS (4)
  - ANGER [None]
  - DEPRESSION [None]
  - IRRITABILITY [None]
  - PHARYNGITIS STREPTOCOCCAL [None]
